FAERS Safety Report 25752964 (Version 2)
Quarter: 2025Q3

REPORT INFORMATION
  Report Type: Spontaneous
  Country: GB (occurrence: GB)
  Receive Date: 20250902
  Receipt Date: 20250903
  Transmission Date: 20251021
  Serious: Yes (Disabling)
  Sender: ELI LILLY AND COMPANY
  Company Number: None

PATIENT
  Age: 31 Year
  Sex: Female

DRUGS (2)
  1. MOUNJARO [Suspect]
     Active Substance: TIRZEPATIDE
     Indication: Weight control
     Route: 065
     Dates: start: 20250603, end: 20250610
  2. GEDAREL [Concomitant]
     Indication: Contraception
     Route: 065

REACTIONS (1)
  - Tinnitus [Not Recovered/Not Resolved]

NARRATIVE: CASE EVENT DATE: 20250603
